FAERS Safety Report 9385691 (Version 2)
Quarter: 2013Q3

REPORT INFORMATION
  Report Type: Report from Study
  Country: ES (occurrence: ES)
  Receive Date: 20130705
  Receipt Date: 20130709
  Transmission Date: 20140515
  Serious: Yes (Death, Life-Threatening, Hospitalization)
  Sender: FDA-Public Use
  Company Number: ES-B.I. PHARMACEUTICALS,INC./RIDGEFIELD-2013-ES-00320ES

PATIENT
  Age: 73 Year
  Sex: Female
  Weight: 74 kg

DRUGS (7)
  1. PRADAXA [Suspect]
     Indication: KNEE ARTHROPLASTY
     Dosage: 150 MG
     Route: 048
     Dates: start: 20130626
  2. ADIRO [Suspect]
     Indication: MYOCARDIAL ISCHAEMIA
     Dosage: 100 MG
     Route: 048
  3. ATENOLOL [Concomitant]
     Indication: HYPERTENSION
     Dosage: 50 MG
     Route: 048
  4. CANDESARTAN [Concomitant]
     Indication: HYPERTENSION
     Dosage: STRENGTH: 32/25MG. DD:32/25MG.
     Route: 048
  5. PRAVASTATIN [Concomitant]
     Indication: DYSLIPIDAEMIA
     Dosage: 40 MG
     Route: 048
  6. OMEPRAZOL [Concomitant]
  7. PARACETAMOL [Concomitant]

REACTIONS (3)
  - Multi-organ failure [Fatal]
  - Renal impairment [Fatal]
  - Gastrointestinal haemorrhage [Unknown]
